FAERS Safety Report 8826342 (Version 1)
Quarter: 2012Q4

REPORT INFORMATION
  Report Type: 
  Country: US (occurrence: US)
  Receive Date: 20121005
  Receipt Date: 20121005
  Transmission Date: 20130627
  Serious: Yes (Death, Hospitalization)
  Sender: FDA-Public Use
  Company Number: US-ROCHE-1131919

PATIENT
  Age: 83 Year
  Sex: Male

DRUGS (4)
  1. RITUXAN [Suspect]
     Indication: ANAEMIA HAEMOLYTIC AUTOIMMUNE
     Route: 065
  2. RITUXAN [Suspect]
     Indication: IDIOPATHIC THROMBOCYTOPENIC PURPURA
  3. RITUXAN [Suspect]
     Indication: OFF LABEL USE
  4. PREDNISOLON [Concomitant]
     Route: 065

REACTIONS (3)
  - Oesophageal candidiasis [Fatal]
  - Pneumonia aspiration [Fatal]
  - Acute respiratory distress syndrome [Fatal]
